FAERS Safety Report 6157481-5 (Version None)
Quarter: 2009Q2

REPORT INFORMATION
  Report Type: 
  Country: None (occurrence: None)
  Receive Date: 20090416
  Receipt Date: 20090410
  Transmission Date: 20091009
  Serious: Yes (Other)
  Sender: FDA-Public Use
  Company Number: PHHY2009AT12516

PATIENT
  Sex: Male

DRUGS (4)
  1. ZOMETA [Suspect]
     Indication: METASTASES TO BONE
     Dosage: 4 MG EVERY 4 WEEKS
     Dates: start: 20070605, end: 20081016
  2. CORTICOSTEROIDS [Concomitant]
  3. CHEMOTHERAPEUTICS NOS [Concomitant]
  4. FORTECORTIN [Concomitant]
     Dosage: 4 MG 2X1, 4 DAYS AFTER EVERY CHEMOTHERAPY
     Dates: start: 20061016, end: 20080909

REACTIONS (7)
  - ERYTHEMA [None]
  - IMPAIRED HEALING [None]
  - ORAL SURGERY [None]
  - OSTEONECROSIS [None]
  - PAIN [None]
  - POST PROCEDURAL COMPLICATION [None]
  - SWELLING [None]
